FAERS Safety Report 8318068-9 (Version None)
Quarter: 2012Q2

REPORT INFORMATION
  Report Type: 
  Country: None (occurrence: None)
  Receive Date: 20120427
  Receipt Date: 20120425
  Transmission Date: 20120825
  Serious: Yes (Other)
  Sender: FDA-Public Use
  Company Number: US-ROCHE-1058449

PATIENT
  Sex: Male

DRUGS (1)
  1. XELODA [Suspect]
     Indication: PRODUCT USED FOR UNKNOWN INDICATION

REACTIONS (4)
  - ASTHENIA [None]
  - NEOPLASM [None]
  - NEPHROLITHIASIS [None]
  - CONSTIPATION [None]
